FAERS Safety Report 6277899-X (Version None)
Quarter: 2009Q3

REPORT INFORMATION
  Report Type: 
  Country: None (occurrence: None)
  Receive Date: 20090722
  Receipt Date: 20070502
  Transmission Date: 20100115
  Serious: Yes (Hospitalization, Other)
  Sender: FDA-Public Use
  Company Number: US-ASTRAZENECA-2006UW01463

PATIENT
  Age: 52 Year
  Sex: Male
  Weight: 144.7 kg

DRUGS (35)
  1. SEROQUEL [Suspect]
     Indication: SCHIZOPHRENIA
     Dosage: 25 MG TO 200 MG
     Route: 048
     Dates: start: 20000918, end: 20050101
  2. SEROQUEL [Suspect]
     Indication: BIPOLAR DISORDER
     Dosage: 25 MG TO 200 MG
     Route: 048
     Dates: start: 20000918, end: 20050101
  3. SEROQUEL [Suspect]
     Indication: BIPOLAR I DISORDER
     Dosage: 25 MG TO 200 MG
     Route: 048
     Dates: start: 20000918, end: 20050101
  4. SEROQUEL [Suspect]
     Dosage: 200 MG
     Route: 048
     Dates: start: 20001013
  5. SEROQUEL [Suspect]
     Dosage: 200 MG
     Route: 048
     Dates: start: 20001013
  6. SEROQUEL [Suspect]
     Dosage: 200 MG
     Route: 048
     Dates: start: 20001013
  7. AMBIEN [Suspect]
     Indication: INSOMNIA
     Route: 048
     Dates: start: 20040918
  8. ZYPREXA [Concomitant]
     Indication: SCHIZOPHRENIA
     Route: 048
     Dates: start: 20000101, end: 20031006
  9. ZYPREXA [Concomitant]
     Indication: BIPOLAR DISORDER
     Route: 048
     Dates: start: 20000101, end: 20031006
  10. ZYPREXA [Concomitant]
     Indication: BIPOLAR I DISORDER
     Route: 048
     Dates: start: 20000101, end: 20031006
  11. CELEXA [Concomitant]
     Route: 048
     Dates: start: 20031006
  12. LITHIUM CARBONATE [Concomitant]
     Route: 048
     Dates: start: 20040712
  13. CLONIDINE [Concomitant]
     Dates: start: 20040211
  14. CLONIDINE [Concomitant]
     Route: 048
     Dates: start: 20040511
  15. WELLBUTRIN XL [Concomitant]
     Route: 048
     Dates: start: 20050119
  16. DEPAKOTE [Concomitant]
     Dates: start: 20000121
  17. DEPAKOTE [Concomitant]
     Route: 048
     Dates: start: 20040921
  18. ZOLOFT [Concomitant]
     Route: 048
     Dates: start: 20050820
  19. ZOLOFT [Concomitant]
     Route: 048
     Dates: start: 20060208
  20. BEXTRA [Concomitant]
     Route: 048
     Dates: start: 20040512
  21. TRAMADOL HCL [Concomitant]
     Route: 048
     Dates: start: 20040604
  22. FLUOXETINE HCL [Concomitant]
     Route: 048
     Dates: start: 20050110
  23. CARBAMAZEPINE [Concomitant]
     Route: 048
     Dates: start: 20050823
  24. LORATADINE [Concomitant]
     Route: 048
     Dates: start: 20060218
  25. LIPITOR [Concomitant]
     Route: 048
     Dates: start: 20060422
  26. LOTREL [Concomitant]
     Dosage: 5 MG - 20 MG
     Route: 048
     Dates: start: 20060503
  27. ENABLEX [Concomitant]
     Route: 048
     Dates: start: 20061204
  28. ENABLEX [Concomitant]
     Route: 048
     Dates: start: 20061216
  29. APAP W/ CODEINE [Concomitant]
     Dosage: 300-30
     Dates: start: 20040608
  30. AMARYL [Concomitant]
     Dates: start: 20040517
  31. ASPIRIN [Concomitant]
  32. MOTRIN [Concomitant]
     Indication: SLEEP DISORDER
     Dosage: 600 MG THREE TIMES A DAY AS NEEDED
     Dates: start: 20001013
  33. TRAZODONE [Concomitant]
     Indication: SLEEP DISORDER
     Dates: start: 20001013
  34. NEURONTIN [Concomitant]
     Dates: start: 20050713
  35. ACTOS [Concomitant]
     Dates: start: 20060318

REACTIONS (21)
  - ABNORMAL BEHAVIOUR [None]
  - BRONCHITIS [None]
  - CARDIAC FAILURE CONGESTIVE [None]
  - CELLULITIS [None]
  - CHEST PAIN [None]
  - DIABETES MELLITUS INADEQUATE CONTROL [None]
  - DRUG WITHDRAWAL SYNDROME [None]
  - HYPOGLYCAEMIA [None]
  - INSOMNIA [None]
  - LIVER DISORDER [None]
  - MUSCULOSKELETAL PAIN [None]
  - NEUROPATHY PERIPHERAL [None]
  - OBESITY [None]
  - OVERDOSE [None]
  - SKIN LESION [None]
  - SUICIDE ATTEMPT [None]
  - TREMOR [None]
  - TYPE 2 DIABETES MELLITUS [None]
  - UPPER RESPIRATORY TRACT INFECTION [None]
  - URINARY TRACT INFECTION [None]
  - VIRAL UPPER RESPIRATORY TRACT INFECTION [None]
